FAERS Safety Report 9904826 (Version 1)
Quarter: 2014Q1

REPORT INFORMATION
  Report Type: Spontaneous
  Country: US (occurrence: US)
  Receive Date: 20140218
  Receipt Date: 20140218
  Transmission Date: 20141002
  Serious: No
  Sender: FDA-Public Use
  Company Number: US-009507513-1402USA008151

PATIENT
  Sex: 0
  Weight: 51.25 kg

DRUGS (2)
  1. NEXPLANON [Suspect]
     Dosage: UNK
     Route: 059
     Dates: start: 20140211, end: 20140211
  2. NEXPLANON [Suspect]
     Dosage: UNK
     Route: 059
     Dates: start: 20140211, end: 20140212

REACTIONS (4)
  - Device difficult to use [Unknown]
  - Device expulsion [Unknown]
  - Product quality issue [Unknown]
  - No adverse event [Unknown]
